FAERS Safety Report 20638855 (Version 1)
Quarter: 2022Q1

REPORT INFORMATION
  Report Type: Spontaneous
  Country: US (occurrence: US)
  Receive Date: 20220325
  Receipt Date: 20220325
  Transmission Date: 20220424
  Serious: Yes (Other)
  Sender: FDA-Public Use
  Company Number: US-ELI_LILLY_AND_COMPANY-US202203007562

PATIENT
  Age: 70 Year
  Sex: Male

DRUGS (9)
  1. HUMULIN R U-500 [Suspect]
     Active Substance: INSULIN HUMAN
     Indication: Type 2 diabetes mellitus
     Dosage: 95 U, BID
     Dates: start: 2021
  2. HUMULIN R U-500 [Suspect]
     Active Substance: INSULIN HUMAN
     Indication: Type 2 diabetes mellitus
     Dosage: 95 U, BID
     Dates: start: 2021
  3. HUMULIN R U-500 [Suspect]
     Active Substance: INSULIN HUMAN
     Dosage: 80 U, DAILY
  4. HUMULIN R U-500 [Suspect]
     Active Substance: INSULIN HUMAN
     Dosage: 80 U, DAILY
  5. HUMULIN R U-500 [Suspect]
     Active Substance: INSULIN HUMAN
     Dosage: UNK UNK, UNKNOWN
     Route: 065
  6. HUMULIN R U-500 [Suspect]
     Active Substance: INSULIN HUMAN
     Dosage: UNK UNK, UNKNOWN
     Route: 065
  7. HUMULIN R [Suspect]
     Active Substance: INSULIN HUMAN
     Indication: Product used for unknown indication
     Dosage: UNK UNK, UNKNOWN
     Route: 065
  8. LANTUS [Concomitant]
     Active Substance: INSULIN GLARGINE
  9. NOVOLIN R [Concomitant]
     Active Substance: INSULIN HUMAN

REACTIONS (11)
  - Cerebrovascular accident [Unknown]
  - Myocardial infarction [Unknown]
  - Hypertension [Unknown]
  - Hyperglycaemia [Unknown]
  - Hypoaesthesia [Unknown]
  - Exercise tolerance decreased [Unknown]
  - Blood glucose fluctuation [Unknown]
  - Obesity [Unknown]
  - Tachycardia [Unknown]
  - Neuropathy peripheral [Unknown]
  - Incorrect dose administered [Unknown]
